FAERS Safety Report 12340685 (Version 1)
Quarter: 2016Q2

REPORT INFORMATION
  Report Type: Report from Study
  Country: IT (occurrence: IT)
  Receive Date: 20160506
  Receipt Date: 20160506
  Transmission Date: 20160815
  Serious: Yes (Other)
  Sender: FDA-Public Use
  Company Number: IT-ROCHE-1747999

PATIENT

DRUGS (3)
  1. CARBOPLATIN. [Suspect]
     Active Substance: CARBOPLATIN
     Indication: OVARIAN CANCER STAGE III
     Route: 065
  2. PACLITAXEL. [Suspect]
     Active Substance: PACLITAXEL
     Indication: OVARIAN CANCER STAGE III
     Route: 065
  3. BEVACIZUMAB [Suspect]
     Active Substance: BEVACIZUMAB
     Indication: OVARIAN CANCER STAGE III
     Route: 065

REACTIONS (11)
  - Biliary fistula [Unknown]
  - Respiratory failure [Unknown]
  - Pulmonary embolism [Unknown]
  - Wound dehiscence [Unknown]
  - Pneumothorax [Unknown]
  - Sepsis [Unknown]
  - Pleural effusion [Unknown]
  - Pelvic abscess [Unknown]
  - Cardiac failure [Unknown]
  - Cognitive disorder [Unknown]
  - Gastric haemorrhage [Unknown]
